FAERS Safety Report 12647116 (Version 1)
Quarter: 2016Q3

REPORT INFORMATION
  Report Type: Spontaneous
  Country: None (occurrence: None)
  Receive Date: 20160811
  Receipt Date: 20160811
  Transmission Date: 20161109
  Serious: Yes (Disabling)
  Sender: FDA-Public Use
  Company Number: None

PATIENT
  Age: 26 Year
  Sex: Female
  Weight: 58.97 kg

DRUGS (7)
  1. BYSTOLIC [Concomitant]
     Active Substance: NEBIVOLOL HYDROCHLORIDE
  2. VAGINIAL VALIUM [Concomitant]
  3. MOBIC [Concomitant]
     Active Substance: MELOXICAM
  4. MIDODRINE [Concomitant]
     Active Substance: MIDODRINE
  5. ZYRTEC [Concomitant]
     Active Substance: CETIRIZINE HYDROCHLORIDE
  6. TOPIRAMATE, 25 MG [Suspect]
     Active Substance: TOPIRAMATE
     Indication: MIGRAINE WITH AURA
     Route: 048
     Dates: start: 20160724, end: 20160803
  7. AMITIZA [Concomitant]
     Active Substance: LUBIPROSTONE

REACTIONS (4)
  - Hot flush [None]
  - Feeling hot [None]
  - Erythema [None]
  - Presyncope [None]

NARRATIVE: CASE EVENT DATE: 20160803
